FAERS Safety Report 17642594 (Version 1)
Quarter: 2020Q2

REPORT INFORMATION
  Report Type: Spontaneous
  Country: US (occurrence: US)
  Receive Date: 20200406
  Receipt Date: 20200406
  Transmission Date: 20200713
  Serious: Yes (Disabling, Other)
  Sender: FDA-Public Use
  Company Number: None

PATIENT
  Age: 86 Year
  Sex: Female
  Weight: 104.33 kg

DRUGS (18)
  1. MAGNESIUM [Concomitant]
     Active Substance: MAGNESIUM
  2. AMLODIPENE/VALSARTAN 10//320 [Concomitant]
  3. MATURE MULTI VITAMIN [Concomitant]
  4. METOPROLOL 25MG [Concomitant]
     Active Substance: METOPROLOL
  5. LATANAPROST [Concomitant]
     Active Substance: LATANOPROST
  6. CALCIUM [Concomitant]
     Active Substance: CALCIUM
  7. VISION COMPLEX [Concomitant]
  8. ZEAXANTHIN [Concomitant]
     Active Substance: ZEAXANTHIN
  9. VITAMIN B12 [Concomitant]
     Active Substance: CYANOCOBALAMIN
  10. LEVOFLOXACIN. [Suspect]
     Active Substance: LEVOFLOXACIN
     Indication: DIVERTICULITIS
     Dosage: ?          QUANTITY:4 DF DOSAGE FORM;?
     Route: 048
     Dates: start: 20190316, end: 20190322
  11. METRONIDAZOLE. [Suspect]
     Active Substance: METRONIDAZOLE
  12. LEVOTHYROXINE 100MG [Concomitant]
     Active Substance: LEVOTHYROXINE
  13. CRANBERRY EXTRACT [Concomitant]
     Active Substance: CRANBERRY JUICE
  14. VITAMIN C [Concomitant]
     Active Substance: ASCORBIC ACID
  15. VIT D [Concomitant]
     Active Substance: VITAMIN D NOS
  16. COMBIGAN [Concomitant]
     Active Substance: BRIMONIDINE TARTRATE\TIMOLOL MALEATE
  17. ASPIRIN 81MG [Concomitant]
     Active Substance: ASPIRIN
  18. LUTEIN [Concomitant]
     Active Substance: LUTEIN

REACTIONS (8)
  - Sluggishness [None]
  - Myalgia [None]
  - Nail bed disorder [None]
  - Musculoskeletal pain [None]
  - Lethargy [None]
  - Muscular weakness [None]
  - Fatigue [None]
  - Gait disturbance [None]

NARRATIVE: CASE EVENT DATE: 20190330
